FAERS Safety Report 5913774-5 (Version None)
Quarter: 2008Q4

REPORT INFORMATION
  Report Type: 
  Country: None (occurrence: None)
  Receive Date: 20081007
  Receipt Date: 20080926
  Transmission Date: 20090506
  Serious: No
  Sender: FDA-Public Use
  Company Number: 2008-182884-NL

PATIENT

DRUGS (2)
  1. ETONOGESTREL (BATCH #: 761032/774684) [Suspect]
     Dosage: DF, TRANSPLACENTAL
     Route: 064
     Dates: start: 20080501, end: 20080625
  2. LEVOTHYROXINE SODIUM [Concomitant]

REACTIONS (3)
  - ABORTION INDUCED [None]
  - FOETAL DISORDER [None]
  - MATERNAL DRUGS AFFECTING FOETUS [None]
